FAERS Safety Report 24709670 (Version 1)
Quarter: 2024Q4

REPORT INFORMATION
  Report Type: Spontaneous
  Country: FR (occurrence: FR)
  Receive Date: 20241209
  Receipt Date: 20241209
  Transmission Date: 20250115
  Serious: Yes (Hospitalization)
  Sender: JOHNSON AND JOHNSON
  Company Number: None

PATIENT
  Age: 92 Year
  Sex: Male
  Weight: 76 kg

DRUGS (3)
  1. XARELTO [Suspect]
     Active Substance: RIVAROXABAN
     Indication: Arrhythmia
     Dosage: 15 MG, QD
     Route: 048
     Dates: start: 20240325, end: 20240325
  2. LOVENOX [Suspect]
     Active Substance: ENOXAPARIN SODIUM
     Indication: Arrhythmia
     Dosage: 4000 IU, QD
     Route: 058
     Dates: start: 20240320, end: 20240321
  3. LOVENOX [Suspect]
     Active Substance: ENOXAPARIN SODIUM
     Dosage: 8000 IU, BID
     Route: 058
     Dates: start: 20240322, end: 20240324

REACTIONS (2)
  - Post procedural haemorrhage [Recovered/Resolved]
  - Surgery [Recovered/Resolved]

NARRATIVE: CASE EVENT DATE: 20240325
